FAERS Safety Report 6124845-5 (Version None)
Quarter: 2009Q1

REPORT INFORMATION
  Report Type: 
  Country: None (occurrence: None)
  Receive Date: 20090319
  Receipt Date: 20090305
  Transmission Date: 20090719
  Serious: Yes (Other)
  Sender: FDA-Public Use
  Company Number: JP-PFIZER INC-2009169786

PATIENT

DRUGS (5)
  1. ATARAX [Suspect]
     Indication: PRURITUS
     Dosage: 50 MG/DAY
     Route: 048
     Dates: start: 20090107, end: 20090131
  2. MAGNESIUM OXIDE [Concomitant]
     Dosage: UNK
     Route: 048
  3. FORSENID [Concomitant]
     Dosage: UNK
     Route: 048
  4. BETNOVAL G [Concomitant]
     Route: 062
     Dates: start: 20081217
  5. GARASONE [Concomitant]
     Route: 062
     Dates: start: 20081217

REACTIONS (2)
  - APHASIA [None]
  - DYSPHONIA [None]
